FAERS Safety Report 14438304 (Version 6)
Quarter: 2018Q2

REPORT INFORMATION
  Report Type: Spontaneous
  Country: US (occurrence: US)
  Receive Date: 20180125
  Receipt Date: 20180613
  Transmission Date: 20180711
  Serious: No
  Sender: FDA-Public Use
  Company Number: US-PFIZER INC-2018030914

PATIENT
  Age: 65 Year
  Sex: Female
  Weight: 100 kg

DRUGS (11)
  1. IBRANCE [Suspect]
     Active Substance: PALBOCICLIB
     Dosage: 75 MG, UNK
     Dates: start: 2016
  2. ALEVE [Concomitant]
     Active Substance: NAPROXEN SODIUM
     Indication: ARTHRALGIA
     Dosage: 2 DF, AS NEEDED (TAKES 2 PILLS AT ONCE TAKES WHEN NEEDED)
  3. IBRANCE [Suspect]
     Active Substance: PALBOCICLIB
     Dosage: 125 MG, CYCLIC (ONCE A DAY 21DAYS ON AND 7 DAYS OFF)
     Dates: start: 201702
  4. IBRANCE [Suspect]
     Active Substance: PALBOCICLIB
     Dosage: 125 MG, UNK
     Dates: start: 20170121
  5. NEXIUM 24HR [Concomitant]
     Active Substance: ESOMEPRAZOLE MAGNESIUM
     Indication: VOMITING
     Dosage: UNK, DAILY
     Dates: start: 2016
  6. VITAMIN B6 [Concomitant]
     Active Substance: PYRIDOXINE HYDROCHLORIDE
     Indication: ARTHRITIS
     Dosage: 200 MG, UNK
  7. IBRANCE [Suspect]
     Active Substance: PALBOCICLIB
     Dosage: 100 MG, UNK
     Dates: start: 2017
  8. IBRANCE [Suspect]
     Active Substance: PALBOCICLIB
     Dosage: 100 MG, UNK
  9. ANASTROZOLE. [Concomitant]
     Active Substance: ANASTROZOLE
     Indication: NEOPLASM MALIGNANT
     Dosage: 1 MG, 1X/DAY
     Dates: start: 201702
  10. IBRANCE [Suspect]
     Active Substance: PALBOCICLIB
     Indication: BREAST CANCER METASTATIC
     Dosage: 125 MG, UNK
     Dates: start: 2015
  11. NEXIUM 24HR [Concomitant]
     Active Substance: ESOMEPRAZOLE MAGNESIUM
     Indication: GASTROOESOPHAGEAL REFLUX DISEASE

REACTIONS (16)
  - Ageusia [Recovering/Resolving]
  - Ocular vascular disorder [Recovering/Resolving]
  - Arthralgia [Unknown]
  - Blister [Not Recovered/Not Resolved]
  - Dysgeusia [Recovering/Resolving]
  - Nail disorder [Recovering/Resolving]
  - Infection [Unknown]
  - Neoplasm progression [Unknown]
  - Onychalgia [Unknown]
  - Cognitive disorder [Recovering/Resolving]
  - Nail discolouration [Recovering/Resolving]
  - Cough [Unknown]
  - Weight fluctuation [Unknown]
  - Alopecia [Not Recovered/Not Resolved]
  - Vision blurred [Not Recovered/Not Resolved]
  - Breast disorder [Unknown]

NARRATIVE: CASE EVENT DATE: 2015
